FAERS Safety Report 5141372-2 (Version None)
Quarter: 2006Q4

REPORT INFORMATION
  Report Type: 
  Country: None (occurrence: None)
  Receive Date: 20061101
  Receipt Date: 20060828
  Transmission Date: 20070319
  Serious: Yes (Other)
  Sender: FDA-Public Use
  Company Number: US-GLAXOSMITHKLINE-A0618234A

PATIENT
  Age: 35 Year
  Sex: Female

DRUGS (3)
  1. LAMICTAL [Suspect]
     Indication: BIPOLAR DISORDER
     Dosage: 200MG AT NIGHT
     Route: 048
     Dates: start: 20060607, end: 20060801
  2. VITAMINS [Concomitant]
  3. OMEGA 3 [Concomitant]

REACTIONS (10)
  - AMENORRHOEA [None]
  - COGNITIVE DISORDER [None]
  - FATIGUE [None]
  - HYPERSENSITIVITY [None]
  - INSOMNIA [None]
  - MELANOCYTIC NAEVUS [None]
  - MIDDLE INSOMNIA [None]
  - PRURITUS [None]
  - RASH [None]
  - RASH MACULAR [None]
